FAERS Safety Report 7893730-0 (Version None)
Quarter: 2011Q4

REPORT INFORMATION
  Report Type: 
  Country: None (occurrence: None)
  Receive Date: 20111104
  Receipt Date: 20111027
  Transmission Date: 20120403
  Serious: Yes (Other)
  Sender: FDA-Public Use
  Company Number: PHHY2011US95401

PATIENT
  Age: 63 Year
  Sex: Male

DRUGS (1)
  1. DOCETAXEL [Suspect]
     Indication: PROSTATE CANCER

REACTIONS (12)
  - MENTAL STATUS CHANGES [None]
  - HAEMOLYTIC URAEMIC SYNDROME [None]
  - HAEMOLYSIS [None]
  - GLUCOSE-6-PHOSPHATE DEHYDROGENASE DEFICIENCY [None]
  - ASTHENIA [None]
  - PULMONARY OEDEMA [None]
  - PYREXIA [None]
  - THALASSAEMIA SICKLE CELL [None]
  - THROMBOTIC THROMBOCYTOPENIC PURPURA [None]
  - RENAL IMPAIRMENT [None]
  - DIARRHOEA [None]
  - DECREASED APPETITE [None]
